FAERS Safety Report 16361347 (Version 4)
Quarter: 2019Q3

REPORT INFORMATION
  Report Type: Spontaneous
  Country: FR (occurrence: FR)
  Receive Date: 20190528
  Receipt Date: 20190716
  Transmission Date: 20191004
  Serious: Yes (Other)
  Sender: FDA-Public Use
  Company Number: FR-PFIZER INC-2019217896

PATIENT
  Age: 53 Year
  Sex: Female
  Weight: 70 kg

DRUGS (9)
  1. DAIVOBET [Concomitant]
     Active Substance: BETAMETHASONE DIPROPIONATE\CALCIPOTRIENE
     Dosage: UNK
     Route: 065
     Dates: start: 20161216
  2. FOLIC ACID. [Concomitant]
     Active Substance: FOLIC ACID
     Indication: PSORIASIS
     Dosage: 5 MG, WEEKLY
     Route: 048
     Dates: start: 20141113, end: 20171013
  3. NOVATREX (METHOTREXATE) [Concomitant]
     Active Substance: METHOTREXATE SODIUM
     Dosage: UNK
     Route: 065
     Dates: start: 20150917, end: 20161216
  4. METHOTREXATE SODIUM. [Suspect]
     Active Substance: METHOTREXATE SODIUM
     Dosage: 10 MG, WEEKLY
     Route: 048
     Dates: start: 20141113, end: 20141218
  5. CLOBETASOL PROPIONATE. [Concomitant]
     Active Substance: CLOBETASOL PROPIONATE
     Dosage: UNK (STRENGTH: 50 UNKNOWN DOSAGE)
     Route: 065
     Dates: start: 20141113
  6. DEXERYL [GLYCEROL;PARAFFIN, LIQUID;WHITE SOFT PARAFFIN] [Concomitant]
     Active Substance: GLYCERIN\MINERAL OIL\PETROLATUM
     Dosage: UNK (STRENGTH: 250 UNKNOWN DOSAGE)
     Route: 065
     Dates: start: 20150605, end: 20171013
  7. METHOTREXATE SODIUM. [Suspect]
     Active Substance: METHOTREXATE SODIUM
     Indication: PSORIASIS
     Dosage: 15 MG, WEEKLY
     Route: 048
     Dates: start: 20141218, end: 20170908
  8. METHOTREXATE SODIUM. [Suspect]
     Active Substance: METHOTREXATE SODIUM
     Dosage: 15 MG, WEEKLY
     Route: 048
     Dates: start: 20141218, end: 20171013
  9. DERMOVAL [BETAMETHASONE] [Concomitant]
     Active Substance: BETAMETHASONE
     Dosage: UNK
     Route: 065
     Dates: start: 20140623

REACTIONS (3)
  - Tuberculosis [Not Recovered/Not Resolved]
  - Gamma-glutamyltransferase increased [Not Recovered/Not Resolved]
  - Hepatitis cholestatic [Recovered/Resolved]

NARRATIVE: CASE EVENT DATE: 20150911
